FAERS Safety Report 9309627 (Version 1)
Quarter: 2013Q2

REPORT INFORMATION
  Report Type: Spontaneous
  Country: US (occurrence: US)
  Receive Date: 20130525
  Receipt Date: 20130525
  Transmission Date: 20140414
  Serious: No
  Sender: FDA-Public Use
  Company Number: US-BRISTOL-MYERS SQUIBB COMPANY-18585737

PATIENT
  Age: 43 Year
  Sex: Female
  Weight: 91.16 kg

DRUGS (2)
  1. BYDUREON [Suspect]
     Indication: INSULIN RESISTANCE
     Dosage: FEB2013
     Route: 058
     Dates: start: 20130131
  2. METFORMIN [Concomitant]
     Indication: INSULIN RESISTANCE

REACTIONS (4)
  - Injection site swelling [Not Recovered/Not Resolved]
  - Nausea [Recovered/Resolved]
  - Off label use [Not Recovered/Not Resolved]
  - Injection site haemorrhage [Unknown]
